FAERS Safety Report 4369825-5 (Version None)
Quarter: 2004Q2

REPORT INFORMATION
  Report Type: 
  Country: None (occurrence: None)
  Receive Date: 20040603
  Receipt Date: 20040525
  Transmission Date: 20050107
  Serious: Yes (Life-Threatening, Disabling)
  Sender: FDA-Public Use
  Company Number: JP-MERCK-0405USA01908

PATIENT
  Age: 62 Year
  Sex: Male

DRUGS (4)
  1. ALLOPURINOL [Concomitant]
     Route: 048
     Dates: end: 20040326
  2. COZAAR [Suspect]
     Indication: HYPERTENSION
     Route: 048
     Dates: start: 20040326, end: 20040521
  3. NAPROXEN [Concomitant]
     Route: 065
  4. ZOCOR [Suspect]
     Indication: HYPERLIPIDAEMIA
     Route: 048
     Dates: start: 20040501, end: 20040521

REACTIONS (1)
  - RHABDOMYOLYSIS [None]
